FAERS Safety Report 6135438-8 (Version None)
Quarter: 2009Q1

REPORT INFORMATION
  Report Type: 
  Country: None (occurrence: None)
  Receive Date: 20090217
  Receipt Date: 20080911
  Transmission Date: 20090719
  Serious: No
  Sender: FDA-Public Use
  Company Number: AEUSA200800223

PATIENT
  Age: 48 Year
  Sex: Female
  Weight: 99.7913 kg

DRUGS (23)
  1. PROLASTIN [Suspect]
     Indication: ALPHA-1 ANTI-TRYPSIN DEFICIENCY
     Dosage: 12320 MG;QOW;IV
     Route: 042
     Dates: start: 20080501
  2. METHADONE [Concomitant]
  3. LISINOPRIL [Concomitant]
  4. LEVOTHYROXINE SODIUM [Concomitant]
  5. LASIX [Concomitant]
  6. FLEXERIL [Concomitant]
  7. DILTIAZEM [Concomitant]
  8. KLONOPIN [Concomitant]
  9. AMBIEN [Concomitant]
  10. XANAX [Concomitant]
  11. SINGULAIR [Concomitant]
  12. THEOPHYLLINE [Concomitant]
  13. VALIUM [Concomitant]
  14. ALBUTEROL [Concomitant]
  15. ZOLOFT [Concomitant]
  16. VICODIN [Concomitant]
  17. VYTORIN [Concomitant]
  18. WELLBUTRIN [Concomitant]
  19. MIRAPEX [Concomitant]
  20. MORPHINE SULFATE [Concomitant]
  21. PRILOSEC [Concomitant]
  22. ADVAIR HFA [Concomitant]
  23. ASPIRIN [Concomitant]

REACTIONS (5)
  - CHEST PAIN [None]
  - DIZZINESS [None]
  - DYSPNOEA [None]
  - HYPOTENSION [None]
  - TACHYCARDIA [None]
